FAERS Safety Report 7457379-6 (Version None)
Quarter: 2011Q1

REPORT INFORMATION
  Report Type: 
  Country: None (occurrence: None)
  Receive Date: 20110302
  Receipt Date: 20100802
  Transmission Date: 20110831
  Serious: Yes (Death)
  Sender: FDA-Public Use
  Company Number: 163-21880-09111520

PATIENT
  Age: 80 Year
  Sex: Female

DRUGS (1)
  1. REVLIMID [Suspect]
     Indication: MYELODYSPLASTIC SYNDROME
     Dosage: 10 MG, DAILY X28 DAYS, PO
     Route: 048
     Dates: start: 20090801, end: 20090101

REACTIONS (2)
  - RENAL FAILURE [None]
  - NEOPLASM PROGRESSION [None]
